FAERS Safety Report 18559012 (Version 1)
Quarter: 2020Q4

REPORT INFORMATION
  Report Type: Spontaneous
  Country: AT (occurrence: AT)
  Receive Date: 20201130
  Receipt Date: 20201130
  Transmission Date: 20210114
  Serious: Yes (Other)
  Sender: FDA-Public Use
  Company Number: NVSC2020AT312310

PATIENT
  Age: 67 Year
  Sex: Female
  Weight: 89 kg

DRUGS (24)
  1. CONCOR [Concomitant]
     Active Substance: BISOPROLOL FUMARATE
     Indication: HYPERTENSION
     Dosage: UNK (ONGOING = CHECKED)
     Route: 065
     Dates: start: 20180814
  2. CAL D VITA [Concomitant]
     Indication: PRODUCT USED FOR UNKNOWN INDICATION
     Dosage: UNK (ONGOING = CHECKED)
     Route: 065
     Dates: start: 20170505
  3. PANTOPRAZOLE [Concomitant]
     Active Substance: PANTOPRAZOLE
     Indication: PRODUCT USED FOR UNKNOWN INDICATION
     Dosage: UNK (ONGOING = CHECKED)
     Route: 065
  4. TRASTUZUMAB. [Suspect]
     Active Substance: TRASTUZUMAB
     Dosage: 408 MG, TIW (ON 24 APR 2020, MOST RECENT DOSE)
     Route: 042
     Dates: start: 20181219
  5. ULSAL [Concomitant]
     Active Substance: RANITIDINE HYDROCHLORIDE
     Indication: PRODUCT USED FOR UNKNOWN INDICATION
     Dosage: UNK (ONGOING = CHECKED)
     Route: 065
     Dates: start: 20170414
  6. PERTUZUMAB. [Suspect]
     Active Substance: PERTUZUMAB
     Indication: BREAST CANCER
     Dosage: 840 MG, TIW (MOST RECENT DOSE OF PERTUZUMAB PRIOR TO THE EVENT: 23 JUL 2018)
     Route: 042
     Dates: start: 20170324
  7. TRITAZIDE [Concomitant]
     Active Substance: HYDROCHLOROTHIAZIDE\RAMIPRIL
     Indication: PRODUCT USED FOR UNKNOWN INDICATION
     Dosage: UNK (ONGOING = CHECKED)
     Route: 065
  8. NOVALGIN [Concomitant]
     Indication: PAIN
     Dosage: UNK (ONGOING = CHECKED)
     Route: 065
     Dates: start: 20180715
  9. TORASEMID [Concomitant]
     Active Substance: TORSEMIDE
     Indication: HYPERTENSION
     Dosage: UNK (ONGOING = CHECKED)
     Route: 065
     Dates: start: 20180214
  10. FORTECORTIN [Concomitant]
     Active Substance: DEXAMETHASONE
     Indication: PRODUCT USED FOR UNKNOWN INDICATION
     Dosage: UNK (ONGOING = CHECKED)
     Route: 065
     Dates: start: 20181017
  11. MEXALEN [Concomitant]
     Active Substance: ACETAMINOPHEN
     Indication: PRODUCT USED FOR UNKNOWN INDICATION
     Dosage: UNK (ONGOING = CHECKED)
     Route: 065
     Dates: start: 20180715
  12. DOCETAXEL. [Suspect]
     Active Substance: DOCETAXEL
     Indication: BREAST CANCER
     Dosage: 137 MG, TIW (MOST RECENT DOSE OF DOCETAXEL PRIOR TO THE EVENT: 17 OCT 2018)
     Route: 042
     Dates: start: 20180608
  13. FULVESTRANT. [Suspect]
     Active Substance: FULVESTRANT
     Indication: BREAST CANCER
     Dosage: 500 MG, BIW (MOST RECENT DOSE OF FULVESTRANT PRIOR TO THE EVENT: 23 DEC 2018)
     Route: 030
     Dates: start: 20181128
  14. TRASTUZUMAB. [Suspect]
     Active Substance: TRASTUZUMAB
     Dosage: 420 MG, TIW
     Route: 042
     Dates: start: 20181128, end: 20181128
  15. MOLAXOLE [Concomitant]
     Active Substance: POLYETHYLENE GLYCOL 3350\POTASSIUM CHLORIDE\SODIUM BICARBONATE\SODIUM CHLORIDE
     Indication: PRODUCT USED FOR UNKNOWN INDICATION
     Dosage: UNK (ONGOING = CHECKED)
     Route: 065
     Dates: start: 20180715
  16. ANASTROZOLE. [Suspect]
     Active Substance: ANASTROZOLE
     Indication: BREAST CANCER
     Dosage: 1 MG, QD (DATE OF MOST RECENT DOSE OF ANASTROZOLE: 14 MAY 2018)
     Route: 048
     Dates: start: 20170324
  17. TRASTUZUMAB. [Suspect]
     Active Substance: TRASTUZUMAB
     Indication: BREAST CANCER
     Dosage: 712 MG, TIW (MOST RECENT DOSE OF TRASTUZUMAB PRIOR TO THE EVENT: 07 NOV 2018)
     Route: 042
     Dates: start: 20170324
  18. TRASTUZUMAB. [Suspect]
     Active Substance: TRASTUZUMAB
     Dosage: 438 MG, TIW
     Route: 042
     Dates: start: 20181017, end: 20181017
  19. KYTRIL [Concomitant]
     Active Substance: GRANISETRON HYDROCHLORIDE
     Indication: PRODUCT USED FOR UNKNOWN INDICATION
     Dosage: UNK (ONGOING = CHECKED)
     Route: 065
     Dates: start: 20180608
  20. FOSTER [Concomitant]
     Active Substance: BECLOMETHASONE\FORMOTEROL
     Indication: DYSPNOEA
     Dosage: UNK (ONGOING = CHECKED)
     Route: 065
     Dates: start: 20171120
  21. FENISTIL [Concomitant]
     Active Substance: DIMETHINDENE
     Indication: PRODUCT USED FOR UNKNOWN INDICATION
     Dosage: UNK (ONGOING = CHECKED)
     Route: 065
     Dates: start: 20170414
  22. ACETYLSALICYLIC ACID [Concomitant]
     Active Substance: ASPIRIN
     Indication: HYPERTENSION
     Dosage: UNK (ONGOING = NOT CHECKED)
     Route: 065
     Dates: start: 20171120, end: 20190615
  23. XGEVA [Concomitant]
     Active Substance: DENOSUMAB
     Indication: PRODUCT USED FOR UNKNOWN INDICATION
     Dosage: UNK (ONGOING = CHECKED)
     Route: 065
     Dates: start: 20181017
  24. DEXABENE [Concomitant]
     Indication: PRODUCT USED FOR UNKNOWN INDICATION
     Dosage: UNK (ONGOING = CHECKED)
     Route: 065
     Dates: start: 20181107

REACTIONS (1)
  - Pulmonary oedema [Recovering/Resolving]

NARRATIVE: CASE EVENT DATE: 20190704
